FAERS Safety Report 19826651 (Version 1)
Quarter: 2021Q3

REPORT INFORMATION
  Report Type: Spontaneous
  Country: US (occurrence: US)
  Receive Date: 20210913
  Receipt Date: 20210913
  Transmission Date: 20211014
  Serious: Yes (Death)
  Sender: FDA-Public Use
  Company Number: US-SAGENT PHARMACEUTICALS-2021SAG001962

PATIENT

DRUGS (3)
  1. LEUCOVORIN CALCIUM. [Suspect]
     Active Substance: LEUCOVORIN CALCIUM
     Indication: HEPATOCELLULAR CARCINOMA
     Dosage: 400 MG/M2, OVER 2 HOURS ON DAY 1
     Route: 042
  2. OXALIPLATIN. [Suspect]
     Active Substance: OXALIPLATIN
     Indication: HEPATOCELLULAR CARCINOMA
     Dosage: 85 MG/M2, ON DAY 1
     Route: 042
  3. FLUOROURACIL. [Suspect]
     Active Substance: FLUOROURACIL
     Indication: HEPATOCELLULAR CARCINOMA
     Dosage: 400 MG/M2 ON DAY 1, 1200 MG/M2 OVER 24 HOURS FOR 2 DAYS
     Route: 042

REACTIONS (1)
  - Sepsis [Fatal]
